FAERS Safety Report 14674726 (Version 2)
Quarter: 2018Q1

REPORT INFORMATION
  Report Type: Spontaneous
  Country: IN (occurrence: IN)
  Receive Date: 20180323
  Receipt Date: 20180326
  Transmission Date: 20180509
  Serious: No
  Sender: FDA-Public Use
  Company Number: IN-PFIZER INC-2017057083

PATIENT
  Age: 66 Year
  Sex: Female

DRUGS (4)
  1. AROMASIN [Suspect]
     Active Substance: EXEMESTANE
     Indication: BREAST CANCER
     Dosage: 25 MG, 1X/DAY
     Route: 048
     Dates: start: 20151116, end: 2015
  2. POLYTRIM [Concomitant]
     Active Substance: POLYMYXIN B SULFATE\TRIMETHOPRIM SULFATE
     Dosage: UNK, 2X/DAY
  3. PRATIN /00042702/ [Concomitant]
     Dosage: 4 MG, 2X/DAY
  4. ZOLEDRONIC ACID [Concomitant]
     Active Substance: ZOLEDRONIC ACID
     Indication: BONE CANCER

REACTIONS (3)
  - Weight decreased [Unknown]
  - Renal function test abnormal [Unknown]
  - Mouth ulceration [Unknown]
